FAERS Safety Report 7738858-0 (Version None)
Quarter: 2011Q3

REPORT INFORMATION
  Report Type: 
  Country: None (occurrence: None)
  Receive Date: 20110909
  Receipt Date: 20110829
  Transmission Date: 20111222
  Serious: Yes (Other)
  Sender: FDA-Public Use
  Company Number: FR-BIOGENIDEC-2011BI033313

PATIENT
  Age: 33 Year
  Sex: Female

DRUGS (2)
  1. LAMICTAL [Concomitant]
     Indication: PARTIAL SEIZURES
  2. TYSABRI [Suspect]
     Indication: MULTIPLE SCLEROSIS
     Route: 042
     Dates: start: 20070904, end: 20110719

REACTIONS (1)
  - EOSINOPHILIA [None]
